FAERS Safety Report 9162339 (Version 1)
Quarter: 2013Q1

REPORT INFORMATION
  Report Type: Report from Study
  Country: DE (occurrence: DE)
  Receive Date: 20130314
  Receipt Date: 20130314
  Transmission Date: 20140127
  Serious: Yes (Hospitalization)
  Sender: FDA-Public Use
  Company Number: PHHY2013DE023749

PATIENT
  Age: 42 Year
  Sex: Female

DRUGS (5)
  1. MYCOPHENOLATE [Suspect]
     Indication: RENAL TRANSPLANT
     Dosage: UNK UKN, UNK
     Route: 048
     Dates: start: 20121111
  2. BASILIXIMAB [Suspect]
     Indication: RENAL TRANSPLANT
     Dosage: 20 MG, UNK
     Dates: start: 20121111
  3. PREDNISOLONE [Suspect]
     Indication: RENAL TRANSPLANT
     Dosage: UNK UKN, UNK
     Dates: start: 20121111
  4. TACROLIMUS [Suspect]
     Indication: RENAL TRANSPLANT
     Dosage: 11 MG, UNK
     Route: 048
     Dates: start: 20121111
  5. VALCYTE [Concomitant]
     Dosage: 450 MG, UNK
     Dates: start: 20130116, end: 20130208

REACTIONS (3)
  - Leukopenia [Unknown]
  - Nasopharyngitis [Unknown]
  - Blood creatinine increased [Unknown]
